FAERS Safety Report 5910741-2 (Version None)
Quarter: 2008Q4

REPORT INFORMATION
  Report Type: 
  Country: None (occurrence: None)
  Receive Date: 20081007
  Receipt Date: 20080409
  Transmission Date: 20090506
  Serious: No
  Sender: FDA-Public Use
  Company Number: US-ASTRAZENECA-2008UW07223

PATIENT
  Age: 67 Year
  Sex: Female

DRUGS (4)
  1. ARIMIDEX [Suspect]
     Indication: BREAST CANCER FEMALE
     Route: 048
     Dates: start: 20061001
  2. CARTIA XT [Concomitant]
  3. ALBUTEROL [Concomitant]
  4. QVAR 40 [Concomitant]

REACTIONS (8)
  - DEJA VU [None]
  - DEPRESSION [None]
  - FATIGUE [None]
  - HAIR GROWTH ABNORMAL [None]
  - HOT FLUSH [None]
  - IRRITABILITY [None]
  - MOOD ALTERED [None]
  - NIGHT SWEATS [None]
